FAERS Safety Report 9283018 (Version 1)
Quarter: 2013Q2

REPORT INFORMATION
  Report Type: Spontaneous
  Country: US (occurrence: US)
  Receive Date: 20130510
  Receipt Date: 20130510
  Transmission Date: 20140414
  Serious: No
  Sender: FDA-Public Use
  Company Number: US-GLAXOSMITHKLINE-A0973453A

PATIENT
  Age: 39 Year
  Sex: Female

DRUGS (12)
  1. TYKERB [Suspect]
     Indication: PRODUCT USED FOR UNKNOWN INDICATION
     Dosage: 1250MG PER DAY
     Route: 048
  2. CYMBALTA [Concomitant]
  3. AROMASIN [Concomitant]
  4. COUMADIN [Concomitant]
  5. BENADRYL [Concomitant]
  6. LISINOPRIL [Concomitant]
  7. VALTREX [Concomitant]
  8. VITAMIN B12 [Concomitant]
  9. VITAMIN C [Concomitant]
  10. PRILOSEC [Concomitant]
  11. MULTIVITAMIN [Concomitant]
  12. CALCIUM + D [Concomitant]

REACTIONS (2)
  - Diarrhoea [Unknown]
  - Rash [Unknown]
